FAERS Safety Report 16709989 (Version 1)
Quarter: 2019Q4

REPORT INFORMATION
  Report Type: Spontaneous
  Country: US (occurrence: US)
  Receive Date: 20190815
  Receipt Date: 20190815
  Transmission Date: 20200122
  Serious: No
  Sender: FDA-Public Use
  Company Number: None

PATIENT
  Sex: Female

DRUGS (1)
  1. ZEJULA [Suspect]
     Active Substance: NIRAPARIB
     Indication: OVARIAN CANCER
     Route: 048
     Dates: start: 20170501

REACTIONS (4)
  - Metastases to central nervous system [None]
  - Malignant neoplasm progression [None]
  - Carbohydrate antigen 125 increased [None]
  - Ovarian cancer metastatic [None]
